FAERS Safety Report 5032233-8 (Version None)
Quarter: 2006Q2

REPORT INFORMATION
  Report Type: 
  Country: None (occurrence: None)
  Receive Date: 20060619
  Receipt Date: 20060608
  Transmission Date: 20061013
  Serious: Yes (Hospitalization)
  Sender: FDA-Public Use
  Company Number: 8016758

PATIENT
  Sex: Female

DRUGS (2)
  1. DELSYM [Suspect]
     Indication: COUGH
     Dosage: 2/D PO
     Route: 048
     Dates: start: 20060428, end: 20060429
  2. DELSYM [Suspect]
     Indication: COUGH
     Dosage: 2/D PO
     Route: 048
     Dates: start: 20060429, end: 20060430

REACTIONS (7)
  - BALANCE DISORDER [None]
  - DIZZINESS [None]
  - DRUG INEFFECTIVE [None]
  - GUILLAIN-BARRE SYNDROME [None]
  - INCORRECT DOSE ADMINISTERED [None]
  - NAUSEA [None]
  - VISION BLURRED [None]
